FAERS Safety Report 7269555-6 (Version None)
Quarter: 2011Q1

REPORT INFORMATION
  Report Type: 
  Country: None (occurrence: None)
  Receive Date: 20110125
  Receipt Date: 20110114
  Transmission Date: 20110831
  Serious: Yes (Life-Threatening, Hospitalization, Disabling)
  Sender: FDA-Public Use
  Company Number: 024180

PATIENT
  Sex: Female

DRUGS (5)
  1. OMEPRAZOLE [Concomitant]
  2. PORTALAK /00723101/ [Concomitant]
  3. PANTOPRAZOLE [Concomitant]
  4. GLUCOSE [Concomitant]
  5. KEPPRA [Suspect]
     Indication: STATUS EPILEPTICUS
     Dosage: 500 MG BID ORAL
     Route: 048
     Dates: start: 20101213, end: 20110109

REACTIONS (3)
  - HYPERAMMONAEMIA [None]
  - UNRESPONSIVE TO STIMULI [None]
  - STATUS EPILEPTICUS [None]
